FAERS Safety Report 24354640 (Version 1)
Quarter: 2024Q3

REPORT INFORMATION
  Report Type: Spontaneous
  Country: US (occurrence: None)
  Receive Date: 20240923
  Receipt Date: 20240923
  Transmission Date: 20241016
  Serious: Yes (Life-Threatening)
  Sender: Public
  Company Number: None

PATIENT
  Age: 54 Year
  Sex: Female
  Weight: 94.5 kg

DRUGS (9)
  1. ZEPBOUND [Suspect]
     Active Substance: TIRZEPATIDE
     Indication: Obesity
     Dosage: OTHER QUANTITY : 1 INJECTION(S);?OTHER FREQUENCY : ONCE A WEEK;?
     Route: 058
     Dates: start: 20231231, end: 20240727
  2. FLONASE [Concomitant]
     Active Substance: FLUTICASONE PROPIONATE
  3. NALTREXONE [Concomitant]
     Active Substance: NALTREXONE
  4. LEXAPRO [Concomitant]
     Active Substance: ESCITALOPRAM OXALATE
  5. ELIQUIS [Concomitant]
     Active Substance: APIXABAN
  6. glucosamine/chondroitin [Concomitant]
  7. MULTI-VITAMIN [Concomitant]
     Active Substance: .ALPHA.-TOCOPHEROL ACETATE, DL-\ASCORBIC ACID\CYANOCOBALAMIN\FLUORIDE ION\FOLIC ACID\NIACIN\PYRIDOXI
  8. ASPIRIN [Concomitant]
     Active Substance: ASPIRIN
  9. CALCIUM [Concomitant]
     Active Substance: CALCIUM

REACTIONS (14)
  - Anaphylactic reaction [None]
  - Injection site reaction [None]
  - Injection site erythema [None]
  - Injection site pruritus [None]
  - Injection site urticaria [None]
  - Nasal congestion [None]
  - Feeling hot [None]
  - Pruritus [None]
  - Urticaria [None]
  - Peripheral swelling [None]
  - Swollen tongue [None]
  - Respiratory rate increased [None]
  - Panic attack [None]
  - Therapy cessation [None]

NARRATIVE: CASE EVENT DATE: 20240727
